FAERS Safety Report 8849231 (Version 1)
Quarter: 2012Q4

REPORT INFORMATION
  Report Type: Report from Study
  Country: CA (occurrence: CA)
  Receive Date: 20121019
  Receipt Date: 20121019
  Transmission Date: 20130627
  Serious: Yes (Hospitalization)
  Sender: FDA-Public Use
  Company Number: CA-JNJFOC-20121005788

PATIENT
  Age: 27 Year
  Sex: Female
  Weight: 52 kg

DRUGS (3)
  1. REMICADE [Suspect]
     Indication: CROHN^S DISEASE
     Route: 042
     Dates: start: 20080830
  2. HYDROCORTISONE [Concomitant]
     Route: 065
  3. PREMEDICATION [Concomitant]
     Route: 065

REACTIONS (2)
  - Surgery [Unknown]
  - Abscess [Unknown]
